FAERS Safety Report 5267573-0 (Version None)
Quarter: 2007Q1

REPORT INFORMATION
  Report Type: 
  Country: None (occurrence: None)
  Receive Date: 20070316
  Receipt Date: 20070308
  Transmission Date: 20070707
  Serious: Yes (Hospitalization, Other)
  Sender: FDA-Public Use
  Company Number: ES-AMGEN-UK192852

PATIENT
  Sex: Male
  Weight: 69 kg

DRUGS (12)
  1. MIMPARA [Suspect]
     Indication: HYPERPARATHYROIDISM SECONDARY
     Route: 048
     Dates: start: 20060807
  2. ANTIHYPERTENSIVES [Concomitant]
     Route: 065
  3. DOXAZOSIN MESYLATE [Concomitant]
     Dates: start: 20040221
  4. ACETYLSALICYLIC ACID SRT [Concomitant]
     Route: 048
     Dates: start: 20060405
  5. CLOPIDOGREL [Concomitant]
     Route: 048
     Dates: start: 20060405
  6. AMLODIPINE [Concomitant]
     Route: 048
  7. ENALAPRIL MALEATE [Concomitant]
     Route: 048
     Dates: start: 20060720
  8. TRANXILIUM [Concomitant]
  9. PREDNISONE [Concomitant]
     Dates: start: 20060711
  10. PEPSAMAR [Concomitant]
  11. HEPARIN [Concomitant]
  12. TENORMIN [Concomitant]

REACTIONS (10)
  - ABDOMINAL PAIN [None]
  - ARTHRALGIA [None]
  - CHEST PAIN [None]
  - ELECTROCARDIOGRAM CHANGE [None]
  - HYPERTENSION [None]
  - HYPERTENSIVE CRISIS [None]
  - MUSCULAR WEAKNESS [None]
  - RESPIRATORY TRACT INFECTION [None]
  - TENDON RUPTURE [None]
  - WEIGHT INCREASED [None]
